FAERS Safety Report 7240755-4 (Version None)
Quarter: 2011Q1

REPORT INFORMATION
  Report Type: 
  Country: None (occurrence: None)
  Receive Date: 20110120
  Receipt Date: 20110120
  Transmission Date: 20110831
  Serious: No
  Sender: FDA-Public Use
  Company Number: None

PATIENT
  Sex: Female
  Weight: 90.7194 kg

DRUGS (3)
  1. BUPROPION 200MGS MYLAN [Suspect]
     Indication: DEPRESSION
     Dosage: 400 MGS TWICE A DAY ORAL
     Route: 048
  2. SEROQUEL [Suspect]
     Indication: PSYCHOTIC DISORDER
     Dosage: 400MGS  TWICE A DAY ORAL
     Route: 048
  3. SEROQUEL [Suspect]
     Indication: ANXIETY
     Dosage: 400MGS  TWICE A DAY ORAL
     Route: 048

REACTIONS (1)
  - ALOPECIA [None]
